FAERS Safety Report 18190430 (Version 4)
Quarter: 2021Q4

REPORT INFORMATION
  Report Type: Spontaneous
  Country: CA (occurrence: None)
  Receive Date: 20200825
  Receipt Date: 20211217
  Transmission Date: 20220303
  Serious: Yes (Other)
  Sender: FDA-Public Use
  Company Number: 2020SF04996

PATIENT
  Age: 35 Year
  Sex: Male

DRUGS (24)
  1. QUETIAPINE [Suspect]
     Active Substance: QUETIAPINE
     Indication: Poor quality sleep
     Route: 048
  2. ZOPICLONE [Suspect]
     Active Substance: ZOPICLONE
     Indication: Poor quality sleep
     Route: 064
  3. ZOPICLONE [Suspect]
     Active Substance: ZOPICLONE
     Indication: Poor quality sleep
     Route: 064
  4. BENZTROPINE [Suspect]
     Active Substance: BENZTROPINE
     Indication: Dystonia
     Route: 065
  5. BENZTROPINE [Suspect]
     Active Substance: BENZTROPINE
     Indication: Dystonia
     Route: 065
  6. LITHIUM CARBONATE [Suspect]
     Active Substance: LITHIUM CARBONATE
     Indication: Affective disorder
     Route: 048
  7. LITHIUM CARBONATE [Suspect]
     Active Substance: LITHIUM CARBONATE
     Indication: Affective disorder
     Route: 048
  8. LEVOMEPROMAZINE [Suspect]
     Active Substance: LEVOMEPROMAZINE
     Indication: Poor quality sleep
     Route: 065
  9. LEVOMEPROMAZINE [Suspect]
     Active Substance: LEVOMEPROMAZINE
     Indication: Poor quality sleep
     Route: 065
  10. CLONAZEPAM [Suspect]
     Active Substance: CLONAZEPAM
     Indication: Poor quality sleep
     Route: 065
  11. CLONAZEPAM [Suspect]
     Active Substance: CLONAZEPAM
     Indication: Dystonia
     Route: 065
  12. CLONAZEPAM [Suspect]
     Active Substance: CLONAZEPAM
     Indication: Dystonia
     Route: 065
  13. CLONAZEPAM [Suspect]
     Active Substance: CLONAZEPAM
     Indication: Poor quality sleep
     Route: 065
  14. OXAZEPAM [Suspect]
     Active Substance: OXAZEPAM
     Indication: Poor quality sleep
     Route: 065
  15. OXAZEPAM [Suspect]
     Active Substance: OXAZEPAM
     Indication: Poor quality sleep
     Route: 065
  16. TEMAZEPAM [Suspect]
     Active Substance: TEMAZEPAM
     Indication: Poor quality sleep
     Route: 065
  17. TEMAZEPAM [Suspect]
     Active Substance: TEMAZEPAM
     Indication: Poor quality sleep
     Route: 065
  18. TEMAZEPAM [Suspect]
     Active Substance: TEMAZEPAM
     Indication: Poor quality sleep
     Route: 065
  19. TEMAZEPAM [Suspect]
     Active Substance: TEMAZEPAM
     Indication: Poor quality sleep
     Route: 065
  20. LEVOMEPROMAZINE [Interacting]
     Active Substance: LEVOMEPROMAZINE
     Indication: Poor quality sleep
     Route: 065
  21. ARIPIPRAZOLE [Interacting]
     Active Substance: ARIPIPRAZOLE
     Indication: Psychotic disorder
     Route: 048
  22. ARIPIPRAZOLE [Interacting]
     Active Substance: ARIPIPRAZOLE
     Indication: Psychotic disorder
     Route: 030
  23. VORTIOXETINE [Concomitant]
     Active Substance: VORTIOXETINE
     Indication: Antidepressant therapy
     Route: 048
  24. LORAZEPAM [Concomitant]
     Active Substance: LORAZEPAM
     Route: 065

REACTIONS (6)
  - Drug interaction [Unknown]
  - Dystonia [Unknown]
  - Dystonic tremor [Unknown]
  - Restlessness [Unknown]
  - Drug ineffective [Unknown]
  - Therapeutic product effect incomplete [Unknown]
